FAERS Safety Report 6667656-4 (Version None)
Quarter: 2010Q2

REPORT INFORMATION
  Report Type: 
  Country: None (occurrence: None)
  Receive Date: 20100405
  Receipt Date: 20100322
  Transmission Date: 20101027
  Serious: Yes (Hospitalization)
  Sender: FDA-Public Use
  Company Number: B0641969A

PATIENT
  Sex: Female

DRUGS (12)
  1. ZELITREX [Suspect]
     Indication: ANTIVIRAL PROPHYLAXIS
     Dosage: 1000MG PER DAY
     Route: 048
     Dates: start: 20100128, end: 20100219
  2. BACTRIM [Suspect]
     Dosage: 1TAB TWICE PER DAY
     Route: 048
     Dates: start: 20100128, end: 20100217
  3. CYCLOPHOSPHAMIDE [Suspect]
     Indication: B-CELL LYMPHOMA
     Dosage: 350MG PER DAY
     Route: 048
     Dates: start: 20100202, end: 20100204
  4. FLUDARA [Suspect]
     Indication: B-CELL LYMPHOMA
     Dosage: 40MG PER DAY
     Route: 048
     Dates: start: 20100202, end: 20100204
  5. TANAKAN [Concomitant]
     Route: 048
  6. MEBEVERINE [Concomitant]
     Route: 048
  7. NIFUROXAZIDE [Concomitant]
     Route: 048
  8. PRAVASTATIN [Concomitant]
     Route: 048
  9. COVERSYL [Concomitant]
     Route: 048
  10. TENSTATEN [Concomitant]
     Route: 048
  11. MACROGOL [Concomitant]
     Route: 048
  12. DAFALGAN [Concomitant]
     Route: 048

REACTIONS (10)
  - COUGH [None]
  - DYSPNOEA EXERTIONAL [None]
  - NIKOLSKY'S SIGN [None]
  - ODYNOPHAGIA [None]
  - ORAL DISORDER [None]
  - PAIN OF SKIN [None]
  - PANCYTOPENIA [None]
  - PYREXIA [None]
  - RASH MACULO-PAPULAR [None]
  - TOXIC EPIDERMAL NECROLYSIS [None]
